FAERS Safety Report 25725575 (Version 1)
Quarter: 2025Q3

REPORT INFORMATION
  Report Type: Report from Study
  Country: CA (occurrence: CA)
  Receive Date: 20250826
  Receipt Date: 20250826
  Transmission Date: 20251021
  Serious: Yes (Other)
  Sender: TAKEDA
  Company Number: CA-TAKEDA-2025TUS036558

PATIENT
  Age: 64 Year
  Sex: Female

DRUGS (8)
  1. VEDOLIZUMAB [Suspect]
     Active Substance: VEDOLIZUMAB
     Indication: Colitis ulcerative
  2. VEDOLIZUMAB [Suspect]
     Active Substance: VEDOLIZUMAB
  3. VEDOLIZUMAB [Suspect]
     Active Substance: VEDOLIZUMAB
     Dosage: 300 MILLIGRAM, Q4WEEKS
     Dates: start: 20250818
  4. VEDOLIZUMAB [Suspect]
     Active Substance: VEDOLIZUMAB
  5. IRON [Concomitant]
     Active Substance: IRON
     Indication: Supplementation therapy
  6. PREDNISONE [Concomitant]
     Active Substance: PREDNISONE
  7. ENTOCORT [Concomitant]
     Active Substance: BUDESONIDE
  8. Salofalk [Concomitant]

REACTIONS (9)
  - Anal ulcer [Recovering/Resolving]
  - Perineal ulceration [Recovering/Resolving]
  - Skin ulcer [Recovering/Resolving]
  - Diarrhoea [Recovering/Resolving]
  - Frequent bowel movements [Recovering/Resolving]
  - Defaecation urgency [Recovering/Resolving]
  - Alopecia [Not Recovered/Not Resolved]
  - Off label use [Unknown]
  - Upper respiratory tract infection [Recovered/Resolved]

NARRATIVE: CASE EVENT DATE: 20250301
